FAERS Safety Report 7197747-3 (Version None)
Quarter: 2010Q4

REPORT INFORMATION
  Report Type: 
  Country: None (occurrence: None)
  Receive Date: 20101227
  Receipt Date: 20101221
  Transmission Date: 20110411
  Serious: Yes (Death, Other)
  Sender: FDA-Public Use
  Company Number: JP-SANOFI-AVENTIS-2010SA076883

PATIENT
  Age: 73 Year
  Sex: Female

DRUGS (8)
  1. OXALIPLATIN [Suspect]
     Indication: COLON CANCER METASTATIC
     Route: 041
     Dates: start: 20100105, end: 20100105
  2. OXALIPLATIN [Suspect]
     Route: 041
     Dates: start: 20100413, end: 20100413
  3. FLUOROURACIL [Suspect]
     Indication: COLON CANCER METASTATIC
     Route: 041
     Dates: start: 20100105
  4. FLUOROURACIL [Suspect]
     Route: 041
     Dates: start: 20100401, end: 20100401
  5. AVASTIN [Suspect]
     Indication: COLON CANCER METASTATIC
     Route: 041
     Dates: start: 20100202, end: 20100202
  6. AVASTIN [Suspect]
     Route: 041
  7. LOXOPROFEN SODIUM [Concomitant]
     Dates: start: 20100515, end: 20100515
  8. FOLINIC ACID [Concomitant]
     Indication: COLON CANCER METASTATIC
     Route: 041
     Dates: start: 20100105

REACTIONS (3)
  - DISEASE PROGRESSION [None]
  - GASTROINTESTINAL PERFORATION [None]
  - PERITONITIS [None]
